FAERS Safety Report 19884274 (Version 1)
Quarter: 2021Q3

REPORT INFORMATION
  Report Type: Spontaneous
  Country: US (occurrence: US)
  Receive Date: 20210925
  Receipt Date: 20210925
  Transmission Date: 20211014
  Serious: No
  Sender: FDA-Public Use
  Company Number: None

PATIENT
  Age: 77 Year
  Sex: Female
  Weight: 53.55 kg

DRUGS (20)
  1. DEPAKOTE [Concomitant]
     Active Substance: DIVALPROEX SODIUM
  2. GABAPENTIN. [Concomitant]
     Active Substance: GABAPENTIN
  3. PROPRANOLOL [Concomitant]
     Active Substance: PROPRANOLOL HYDROCHLORIDE
  4. PROAIR HFA [Concomitant]
     Active Substance: ALBUTEROL SULFATE
  5. BABY ASPIRIN [Concomitant]
     Active Substance: ASPIRIN
  6. MIRTAZIPINE [Concomitant]
     Active Substance: MIRTAZAPINE
  7. LOVASTATIN. [Concomitant]
     Active Substance: LOVASTATIN
  8. CALCIUM/MAGNESIUM/ZINC [Concomitant]
  9. VITAMIN D3 [Concomitant]
     Active Substance: CHOLECALCIFEROL
  10. LAMICTAL [Concomitant]
     Active Substance: LAMOTRIGINE
  11. CLINDAMYCIN. [Suspect]
     Active Substance: CLINDAMYCIN
     Indication: TOOTH EXTRACTION
     Dosage: ?          QUANTITY:1 CAPSULE(S);?
     Route: 048
     Dates: start: 20210920, end: 20210923
  12. O2 [Concomitant]
     Active Substance: OXYGEN
  13. IBUPROPHEN [Concomitant]
     Active Substance: IBUPROFEN
  14. VIT B COMPLEX WITH FOLIC ACID [Concomitant]
  15. CLINDAMYCIN. [Suspect]
     Active Substance: CLINDAMYCIN
     Indication: ORAL INFECTION
     Dosage: ?          QUANTITY:1 CAPSULE(S);?
     Route: 048
     Dates: start: 20210920, end: 20210923
  16. CLINDAMYCIN. [Suspect]
     Active Substance: CLINDAMYCIN
     Indication: BONE GRAFT
     Dosage: ?          QUANTITY:1 CAPSULE(S);?
     Route: 048
     Dates: start: 20210920, end: 20210923
  17. TRAZODONE [Concomitant]
     Active Substance: TRAZODONE HYDROCHLORIDE
  18. DUO?NEB [Concomitant]
  19. TRELEGY ELLIPTA [Concomitant]
     Active Substance: FLUTICASONE FUROATE\UMECLIDINIUM BROMIDE\VILANTEROL TRIFENATATE
  20. HYDROCODONE [Concomitant]
     Active Substance: HYDROCODONE

REACTIONS (9)
  - Abdominal pain [None]
  - Nausea [None]
  - Oral mucosal exfoliation [None]
  - Oral pain [None]
  - Skin lesion [None]
  - Diarrhoea [None]
  - Nasal disorder [None]
  - Lip pain [None]
  - Lip exfoliation [None]

NARRATIVE: CASE EVENT DATE: 20210923
